FAERS Safety Report 6245307-0 (Version None)
Quarter: 2009Q2

REPORT INFORMATION
  Report Type: 
  Country: None (occurrence: None)
  Receive Date: 20090619
  Receipt Date: 20090409
  Transmission Date: 20091009
  Serious: No
  Sender: FDA-Public Use
  Company Number: ALL1-2009-00953

PATIENT
  Age: 55 Year
  Sex: Female
  Weight: 68 kg

DRUGS (7)
  1. VYVANSE [Suspect]
     Indication: ATTENTION DEFICIT/HYPERACTIVITY DISORDER
     Dosage: 20 MG, 1X/DAY:QD, ORAL : 40MG (2 X 20MG CAPSULES), 1X/DAY:QD, ORAL : 50 MG, 1X/DAY:QD, ORAL
     Route: 048
     Dates: start: 20090101, end: 20090201
  2. VYVANSE [Suspect]
     Indication: ATTENTION DEFICIT/HYPERACTIVITY DISORDER
     Dosage: 20 MG, 1X/DAY:QD, ORAL : 40MG (2 X 20MG CAPSULES), 1X/DAY:QD, ORAL : 50 MG, 1X/DAY:QD, ORAL
     Route: 048
     Dates: start: 20090201, end: 20090301
  3. VYVANSE [Suspect]
     Indication: ATTENTION DEFICIT/HYPERACTIVITY DISORDER
     Dosage: 20 MG, 1X/DAY:QD, ORAL : 40MG (2 X 20MG CAPSULES), 1X/DAY:QD, ORAL : 50 MG, 1X/DAY:QD, ORAL
     Route: 048
     Dates: start: 20090301
  4. SUDAFED (OXYMETAZOLINE HYDROCHLORIDE) [Concomitant]
  5. SAM-E (ADEMETIONINE) [Concomitant]
  6. VICODIN [Concomitant]
  7. PERCOCET [Concomitant]

REACTIONS (8)
  - BACK PAIN [None]
  - BLOOD PRESSURE INCREASED [None]
  - DRUG ADMINISTRATION ERROR [None]
  - DRUG EFFECT INCREASED [None]
  - ENERGY INCREASED [None]
  - INSOMNIA [None]
  - INTENTIONAL DRUG MISUSE [None]
  - THERAPEUTIC RESPONSE UNEXPECTED [None]
